FAERS Safety Report 11410145 (Version 1)
Quarter: 2015Q3

REPORT INFORMATION
  Report Type: Spontaneous
  Country: US (occurrence: None)
  Receive Date: 20150820
  Receipt Date: 20150820
  Transmission Date: 20151125
  Serious: No
  Sender: FDA-Public Use
  Company Number: None

PATIENT
  Sex: Female
  Weight: 76.2 kg

DRUGS (1)
  1. OXYBUTYNIN XL [Suspect]
     Active Substance: OXYBUTYNIN CHLORIDE
     Dosage: 10 QD PO
     Route: 048

REACTIONS (1)
  - Drug ineffective [None]
